FAERS Safety Report 13027948 (Version 1)
Quarter: 2016Q4

REPORT INFORMATION
  Report Type: Spontaneous
  Country: US (occurrence: US)
  Receive Date: 20161214
  Receipt Date: 20161214
  Transmission Date: 20170207
  Serious: Yes (Other)
  Sender: FDA-Public Use
  Company Number: US-PFIZER INC-2016574266

PATIENT
  Age: 35 Year
  Sex: Female
  Weight: 107 kg

DRUGS (4)
  1. MORPHINE [Concomitant]
     Active Substance: MORPHINE
     Dosage: UNK
  2. WARFARIN [Concomitant]
     Active Substance: WARFARIN
     Dosage: UNK
  3. HYDROCODONE [Concomitant]
     Active Substance: HYDROCODONE
     Dosage: UNK
  4. IBRANCE [Suspect]
     Active Substance: PALBOCICLIB
     Indication: BREAST CANCER
     Dosage: 125 MG, UNK

REACTIONS (5)
  - Papilloedema [Not Recovered/Not Resolved]
  - Disease progression [Unknown]
  - Vision blurred [Unknown]
  - Blindness unilateral [Unknown]
  - Papillitis [Not Recovered/Not Resolved]
